FAERS Safety Report 23695588 (Version 1)
Quarter: 2024Q2

REPORT INFORMATION
  Report Type: Spontaneous
  Country: US (occurrence: US)
  Receive Date: 20240402
  Receipt Date: 20240402
  Transmission Date: 20240715
  Serious: No
  Sender: FDA-Public Use
  Company Number: US-HALEON-USCH2024016077

PATIENT
  Age: 54 Year
  Sex: Female

DRUGS (1)
  1. SENSODYNE REPAIR AND PROTECT WHITENING [Suspect]
     Active Substance: STANNOUS FLUORIDE
     Indication: Dental cleaning
     Dosage: UNK

REACTIONS (2)
  - Lip swelling [Recovered/Resolved]
  - Ageusia [Recovered/Resolved]
